FAERS Safety Report 9221685 (Version 2)
Quarter: 2013Q2

REPORT INFORMATION
  Report Type: Spontaneous
  Country: NL (occurrence: NL)
  Receive Date: 20130410
  Receipt Date: 20130605
  Transmission Date: 20140414
  Serious: Yes (Other)
  Sender: FDA-Public Use
  Company Number: NL-JNJFOC-20130404652

PATIENT
  Age: 52 Year
  Sex: 0

DRUGS (5)
  1. PREZISTA [Suspect]
     Indication: PRODUCT USED FOR UNKNOWN INDICATION
     Route: 048
     Dates: start: 2011, end: 2013
  2. PRAVASTATIN [Concomitant]
     Route: 048
  3. TRUVADA [Concomitant]
     Route: 048
  4. NORVIR [Concomitant]
     Route: 048
  5. MELATONIN [Concomitant]
     Route: 048

REACTIONS (2)
  - Nephrolithiasis [Recovered/Resolved]
  - Hydronephrosis [Recovered/Resolved]
